FAERS Safety Report 5525899-7 (Version None)
Quarter: 2007Q4

REPORT INFORMATION
  Report Type: 
  Country: None (occurrence: None)
  Receive Date: 20071126
  Receipt Date: 20071116
  Transmission Date: 20080405
  Serious: Yes (Life-Threatening, Other)
  Sender: FDA-Public Use
  Company Number: GB-ASTRAZENECA-2007GB02327

PATIENT
  Age: 19 Year
  Sex: Female

DRUGS (15)
  1. OMEPRAZOLE [Suspect]
     Route: 065
  2. ACYCLOVIR [Suspect]
     Route: 065
  3. ALLOPURINOL [Suspect]
     Route: 048
  4. CASPOFUNGIN [Suspect]
     Route: 042
  5. CHLORPHENIRAMINE MALEATE [Suspect]
     Route: 042
  6. CYCLOSPORINE [Suspect]
     Route: 065
  7. ETOPOSIDE [Suspect]
     Route: 042
     Dates: start: 20070915, end: 20070915
  8. KETALAR [Suspect]
     Indication: PAIN
     Route: 042
     Dates: start: 20070921, end: 20070928
  9. MORPHINE [Suspect]
     Route: 042
  10. NORETHINDRONE ACETATE [Suspect]
     Route: 048
  11. ONDANSETRON [Suspect]
     Route: 042
  12. PARACETAMOL [Suspect]
     Route: 042
  13. TAZOCIN [Suspect]
     Route: 042
  14. VORICONAZOLE [Suspect]
     Route: 048
  15. TPN [Suspect]
     Route: 065

REACTIONS (4)
  - DILATATION INTRAHEPATIC DUCT ACQUIRED [None]
  - HEPATOTOXICITY [None]
  - LIVER FUNCTION TEST ABNORMAL [None]
  - VENOOCCLUSIVE DISEASE [None]
